FAERS Safety Report 7120367-3 (Version None)
Quarter: 2010Q4

REPORT INFORMATION
  Report Type: 
  Country: None (occurrence: None)
  Receive Date: 20101124
  Receipt Date: 20101116
  Transmission Date: 20110411
  Serious: Yes (Hospitalization)
  Sender: FDA-Public Use
  Company Number: US-BIOGENIDEC-2010BI037571

PATIENT
  Sex: Female
  Weight: 68 kg

DRUGS (1)
  1. AVONEX [Suspect]
     Indication: MULTIPLE SCLEROSIS
     Route: 030
     Dates: start: 20090116

REACTIONS (8)
  - FATIGUE [None]
  - HANGOVER [None]
  - INCONTINENCE [None]
  - PROCEDURAL VOMITING [None]
  - RECTOCELE [None]
  - STRESS [None]
  - UTERINE PROLAPSE [None]
  - VAGINAL HAEMORRHAGE [None]
